FAERS Safety Report 13156692 (Version 1)
Quarter: 2017Q1

REPORT INFORMATION
  Report Type: Spontaneous
  Country: DE (occurrence: DE)
  Receive Date: 20170126
  Receipt Date: 20170126
  Transmission Date: 20170428
  Serious: Yes (Death, Life-Threatening, Hospitalization)
  Sender: FDA-Public Use
  Company Number: DE-AMGEN-DEUSP2017012585

PATIENT
  Age: 63 Year
  Sex: Female
  Weight: 74 kg

DRUGS (3)
  1. KYPROLIS [Suspect]
     Active Substance: CARFILZOMIB
     Indication: PLASMACYTOMA
     Dosage: 36 MG, QD
     Route: 042
     Dates: start: 20170110, end: 20170111
  2. DEXAMETHASON [Concomitant]
     Active Substance: DEXAMETHASONE
     Indication: PLASMACYTOMA
     Dosage: 20 MG, QD
     Route: 048
     Dates: start: 20170117
  3. KYPROLIS [Suspect]
     Active Substance: CARFILZOMIB
     Dosage: 100 MG, QD
     Route: 042
     Dates: start: 20170117

REACTIONS (4)
  - Renal failure [Fatal]
  - Somnolence [Fatal]
  - General physical health deterioration [Fatal]
  - Shock [Fatal]

NARRATIVE: CASE EVENT DATE: 20170118
